FAERS Safety Report 7085989-7 (Version None)
Quarter: 2010Q4

REPORT INFORMATION
  Report Type: 
  Country: None (occurrence: None)
  Receive Date: 20101105
  Receipt Date: 20101027
  Transmission Date: 20110411
  Serious: Yes (Other)
  Sender: FDA-Public Use
  Company Number: US-ASTRAZENECA-2010SE51504

PATIENT
  Age: 25819 Day
  Sex: Female

DRUGS (5)
  1. ARIMIDEX [Suspect]
     Indication: BREAST CANCER
     Route: 048
     Dates: start: 20050101
  2. ARTHROTEC [Concomitant]
     Indication: ARTHRITIS
     Route: 048
  3. SYNTHROID [Concomitant]
     Dosage: DAILY
     Route: 048
  4. LISINOPRIL [Concomitant]
     Route: 048
  5. BONIVA [Concomitant]
     Dosage: MONTHLY
     Route: 048

REACTIONS (4)
  - ARTHRALGIA [None]
  - FALL [None]
  - PATELLA FRACTURE [None]
  - SOFT TISSUE DISORDER [None]
